FAERS Safety Report 21051846 (Version 2)
Quarter: 2022Q3

REPORT INFORMATION
  Report Type: Report from Study
  Country: US (occurrence: US)
  Receive Date: 20220707
  Receipt Date: 20220808
  Transmission Date: 20221026
  Serious: Yes (Other)
  Sender: FDA-Public Use
  Company Number: US-BRISTOL-MYERS SQUIBB COMPANY-2022-064441

PATIENT
  Age: 45 Year
  Sex: Male

DRUGS (1)
  1. ZEPOSIA [Suspect]
     Active Substance: OZANIMOD HYDROCHLORIDE
     Indication: Colitis ulcerative
     Route: 048
     Dates: start: 20220603, end: 20220721

REACTIONS (5)
  - Rectal haemorrhage [Unknown]
  - Mucous stools [Unknown]
  - Diarrhoea [Unknown]
  - Faeces discoloured [Unknown]
  - Drug ineffective [Unknown]
